FAERS Safety Report 7141614-8 (Version None)
Quarter: 2010Q4

REPORT INFORMATION
  Report Type: 
  Country: None (occurrence: None)
  Receive Date: 20101202
  Receipt Date: 20101202
  Transmission Date: 20110411
  Serious: Yes (Hospitalization)
  Sender: FDA-Public Use
  Company Number: None

PATIENT
  Sex: Female
  Weight: 57.6068 kg

DRUGS (1)
  1. TERBINAFINE HCL [Suspect]
     Indication: ONYCHOMYCOSIS
     Dosage: 250 MG ONCE DAY PO
     Route: 048
     Dates: start: 20100905, end: 20100907

REACTIONS (3)
  - ABASIA [None]
  - DIZZINESS [None]
  - INNER EAR DISORDER [None]
